FAERS Safety Report 9632603 (Version 3)
Quarter: 2013Q4

REPORT INFORMATION
  Report Type: Spontaneous
  Country: BR (occurrence: BR)
  Receive Date: 20131018
  Receipt Date: 20131113
  Transmission Date: 20140711
  Serious: Yes (Other)
  Sender: FDA-Public Use
  Company Number: BR-PFIZER INC-2013272146

PATIENT
  Sex: Female

DRUGS (4)
  1. PRISTIQ [Suspect]
     Indication: ANTIDEPRESSANT THERAPY
     Dosage: 100 MG, DAILY
     Route: 048
     Dates: start: 201306, end: 2013
  2. PRISTIQ [Suspect]
     Dosage: 150 MG, UNK
     Route: 048
     Dates: start: 2013, end: 2013
  3. PRISTIQ [Suspect]
     Dosage: 100 MG, UNK
     Route: 048
     Dates: start: 2013, end: 2013
  4. PRISTIQ [Suspect]
     Dosage: HALF OF THE TABLET ONE DAY
     Route: 048
     Dates: start: 2013, end: 2013

REACTIONS (32)
  - Tachycardia [Not Recovered/Not Resolved]
  - Drug abuser [Unknown]
  - Mastitis [Unknown]
  - Drug ineffective [Unknown]
  - Feeling abnormal [Recovered/Resolved]
  - Immune system disorder [Unknown]
  - Panic disorder [Unknown]
  - Drug withdrawal syndrome [Recovered/Resolved]
  - Tremor [Unknown]
  - Anxiety [Not Recovered/Not Resolved]
  - Irritability [Recovered/Resolved]
  - Nervousness [Recovered/Resolved]
  - Abnormal dreams [Recovered/Resolved]
  - Depressed mood [Not Recovered/Not Resolved]
  - Crying [Unknown]
  - Insomnia [Unknown]
  - Slow speech [Unknown]
  - Dysarthria [Unknown]
  - Weight increased [Unknown]
  - Fear [Recovered/Resolved]
  - Screaming [Unknown]
  - Rash [Unknown]
  - Inflammation [Unknown]
  - Emotional disorder [Unknown]
  - General physical condition abnormal [Unknown]
  - Abdominal pain [Unknown]
  - Dizziness [Recovered/Resolved]
  - Vomiting [Unknown]
  - Muscular weakness [Recovered/Resolved]
  - Restless legs syndrome [Unknown]
  - Headache [Recovered/Resolved]
  - Constipation [Recovered/Resolved]
